FAERS Safety Report 11952714 (Version 5)
Quarter: 2016Q3

REPORT INFORMATION
  Report Type: Spontaneous
  Country: ES (occurrence: ES)
  Receive Date: 20160126
  Receipt Date: 20160826
  Transmission Date: 20161109
  Serious: Yes (Hospitalization, Other)
  Sender: FDA-Public Use
  Company Number: ES-ALEXION PHARMACEUTICALS INC.-A201600368

PATIENT
  Age: 27 Year
  Sex: Male

DRUGS (2)
  1. SOLIRIS [Suspect]
     Active Substance: ECULIZUMAB
     Indication: HAEMOLYTIC URAEMIC SYNDROME
     Dosage: 900 MG, WEEKLY
     Route: 042
     Dates: start: 20151120, end: 201512
  2. SOLIRIS [Suspect]
     Active Substance: ECULIZUMAB
     Dosage: 1200 MG, BIWEEKLY
     Route: 042
     Dates: start: 201512

REACTIONS (7)
  - Anaemia [Recovered/Resolved]
  - Cardiac failure [Recovered/Resolved]
  - Diabetic metabolic decompensation [Unknown]
  - Renal failure [Recovered/Resolved]
  - Pneumonia cytomegaloviral [Unknown]
  - Acute respiratory distress syndrome [Unknown]
  - Sepsis [Unknown]

NARRATIVE: CASE EVENT DATE: 20160107
